FAERS Safety Report 8817605 (Version 1)
Quarter: 2012Q4

REPORT INFORMATION
  Report Type: 
  Country: US (occurrence: US)
  Receive Date: 20121001
  Receipt Date: 20121001
  Transmission Date: 20130627
  Serious: Yes (Hospitalization)
  Sender: FDA-Public Use
  Company Number: US-009507513-1209USA007931

PATIENT
  Age: 50 Year
  Sex: Female
  Weight: 79.82 kg

DRUGS (6)
  1. PEGINTRON [Suspect]
     Indication: HEPATITIS C
     Dosage: 120 microgram per 0.5 milliliter
     Dates: start: 20120817
  2. REBETOL [Suspect]
     Indication: HEPATITIS C
     Dosage: UNK
     Dates: start: 20120817
  3. SUBOXONE [Concomitant]
     Dosage: UNK
  4. AMPHETAMINE SALT COMBO [Concomitant]
     Dosage: UNK
  5. TRAMADOL HYDROCHLORIDE [Concomitant]
     Dosage: UNK
  6. ABILIFY [Concomitant]
     Dosage: UNK

REACTIONS (1)
  - Depression [Unknown]
